FAERS Safety Report 9893993 (Version 2)
Quarter: 2014Q1

REPORT INFORMATION
  Report Type: Spontaneous
  Country: US (occurrence: US)
  Receive Date: 20140213
  Receipt Date: 20140213
  Transmission Date: 20141002
  Serious: No
  Sender: FDA-Public Use
  Company Number: US-PFIZER INC-2014025680

PATIENT
  Age: 55 Year
  Sex: Male

DRUGS (4)
  1. SUTENT [Suspect]
     Dosage: 37.5 MG, 1X/DAY
     Route: 048
     Dates: start: 20131123
  2. CIPROFLOXACIN [Concomitant]
  3. MORPHINE [Concomitant]
  4. OXYCODONE [Concomitant]

REACTIONS (3)
  - Vomiting [Unknown]
  - Blister [Unknown]
  - Pyrexia [Unknown]
